FAERS Safety Report 7480459-6 (Version None)
Quarter: 2011Q2

REPORT INFORMATION
  Report Type: 
  Country: None (occurrence: None)
  Receive Date: 20110516
  Receipt Date: 20110502
  Transmission Date: 20111010
  Serious: Yes (Hospitalization)
  Sender: FDA-Public Use
  Company Number: BR-ELI_LILLY_AND_COMPANY-BR201104007152

PATIENT
  Sex: Female
  Weight: 60 kg

DRUGS (6)
  1. ATACAND HCT [Concomitant]
     Indication: HYPERTENSION
     Dosage: UNK, QD
     Route: 065
  2. FORTEO [Suspect]
     Dosage: UNK, UNKNOWN
     Route: 065
  3. DIOVAN [Concomitant]
     Indication: HYPERTENSION
     Dosage: UNK, UNKNOWN
     Route: 065
  4. DIURETICS [Concomitant]
     Dosage: UNK, UNKNOWN
     Route: 065
  5. FORTEO [Suspect]
     Dosage: UNK, UNKNOWN
     Route: 065
     Dates: start: 20090101
  6. METOPROLOL SUCCINATE [Concomitant]
     Indication: HYPERTENSION
     Dosage: UNK, UNKNOWN
     Route: 065

REACTIONS (5)
  - DEHYDRATION [None]
  - HYPOKALAEMIA [None]
  - FEELING ABNORMAL [None]
  - VOMITING [None]
  - HYPERTENSION [None]
